FAERS Safety Report 15011697 (Version 1)
Quarter: 2018Q2

REPORT INFORMATION
  Report Type: Spontaneous
  Country: PL (occurrence: PL)
  Receive Date: 20180614
  Receipt Date: 20180614
  Transmission Date: 20180711
  Serious: Yes (Life-Threatening)
  Sender: FDA-Public Use
  Company Number: PL-BAXTER-2018BAX017002

PATIENT
  Age: 2 Day
  Sex: Female
  Weight: 2.98 kg

DRUGS (2)
  1. NUMETA G13%E PRETERM [Suspect]
     Active Substance: AMINO ACIDS\DEXTROSE\ELECTROLYTES NOS\SOYBEAN OIL
     Indication: GASTROINTESTINAL DISORDER
     Dosage: V=2ML/H, VIA PERIPHERAL ROUTE
     Route: 042
     Dates: start: 20180605, end: 20180605
  2. AQUA PRO INJECTIONE BAXTER [Suspect]
     Active Substance: WATER
     Indication: MEDICATION DILUTION
     Dosage: V=2ML/H, VIA PERIPHERAL ROUTE
     Route: 042
     Dates: start: 20180605, end: 20180605

REACTIONS (3)
  - Cyanosis [Recovered/Resolved]
  - Oxygen saturation decreased [Recovered/Resolved]
  - Apnoea [Recovered/Resolved]

NARRATIVE: CASE EVENT DATE: 20180605
